FAERS Safety Report 21734182 (Version 1)
Quarter: 2022Q4

REPORT INFORMATION
  Report Type: Spontaneous
  Country: US (occurrence: US)
  Receive Date: 20221215
  Receipt Date: 20221215
  Transmission Date: 20230113
  Serious: No
  Sender: FDA-Public Use
  Company Number: US-PFIZER INC-202201368967

PATIENT
  Age: 77 Year
  Sex: Male

DRUGS (1)
  1. PAXLOVID [Suspect]
     Active Substance: NIRMATRELVIR\RITONAVIR
     Indication: COVID-19 treatment
     Dosage: RENAL DOSE PACK, [PF-07321332 150 MG]/[RITONAVIR 100 MG]; 2X/DAY

REACTIONS (2)
  - Circumstance or information capable of leading to medication error [Unknown]
  - Product packaging confusion [Unknown]
